FAERS Safety Report 7473313-7 (Version None)
Quarter: 2011Q2

REPORT INFORMATION
  Report Type: 
  Country: None (occurrence: None)
  Receive Date: 20110503
  Receipt Date: 20110405
  Transmission Date: 20111010
  Serious: Yes (Life-Threatening)
  Sender: FDA-Public Use
  Company Number: 54973

PATIENT
  Age: 2 Year
  Sex: Female
  Weight: 12.2471 kg

DRUGS (2)
  1. HYLAND'S TEETHING GEL [Suspect]
     Indication: TEETHING
     Dosage: AS DIRECTED X 2 DOSES
  2. ACETAMINOPHEN [Suspect]
     Dosage: X 1

REACTIONS (4)
  - VOMITING [None]
  - LETHARGY [None]
  - PYREXIA [None]
  - DELIRIUM [None]
